FAERS Safety Report 14638691 (Version 1)
Quarter: 2018Q1

REPORT INFORMATION
  Report Type: Other
  Country: IN (occurrence: IN)
  Receive Date: 20180315
  Receipt Date: 20180315
  Transmission Date: 20180509
  Serious: Yes (Other)
  Sender: FDA-Public Use
  Company Number: IN-CIPHER-2018-IN-000004

PATIENT
  Age: 6 Year
  Sex: Male
  Weight: 15 kg

DRUGS (2)
  1. FENOFIBRATE. [Suspect]
     Active Substance: FENOFIBRATE
     Indication: HYPERLIPIDAEMIA
     Dosage: 100MG
  2. OMEGA 3 (FISH OIL) [Concomitant]
     Active Substance: OMEGA-3 FATTY ACIDS
     Indication: HYPERLIPIDAEMIA

REACTIONS (6)
  - Pancreatitis acute [Unknown]
  - Hyperlipidaemia [Recovering/Resolving]
  - Drug administered to patient of inappropriate age [Unknown]
  - Pallor [Unknown]
  - Abdominal pain [Unknown]
  - Vomiting [Unknown]
